FAERS Safety Report 10852395 (Version 1)
Quarter: 2015Q1

REPORT INFORMATION
  Report Type: Spontaneous
  Country: None (occurrence: US)
  Receive Date: 20150222
  Receipt Date: 20150222
  Transmission Date: 20150721
  Serious: No
  Sender: FDA-Public Use
  Company Number: US-ALLERGAN-1425910US

PATIENT

DRUGS (1)
  1. BOTOX [Suspect]
     Active Substance: ONABOTULINUMTOXINA
     Indication: HYPERTONIC BLADDER
     Dosage: UNK, SINGLE
     Dates: start: 201407, end: 201407

REACTIONS (5)
  - Bacteriuria [Unknown]
  - Urinary tract infection [Unknown]
  - Dysuria [Unknown]
  - Drug ineffective [Unknown]
  - Cystitis [Unknown]
